FAERS Safety Report 9288271 (Version 2)
Quarter: 2013Q3

REPORT INFORMATION
  Report Type: Spontaneous
  Country: NO (occurrence: NO)
  Receive Date: 20130514
  Receipt Date: 20130709
  Transmission Date: 20140515
  Serious: Yes (Other)
  Sender: FDA-Public Use
  Company Number: PHHY2013NO045248

PATIENT
  Sex: Male

DRUGS (2)
  1. RITALIN [Suspect]
     Indication: ATTENTION DEFICIT/HYPERACTIVITY DISORDER
     Dosage: 300 MG, DAILY
  2. RITALIN [Suspect]
     Dosage: 250 MG

REACTIONS (4)
  - Depression [Unknown]
  - Decreased activity [Unknown]
  - Hypersomnia [Unknown]
  - Asthenia [Unknown]
